FAERS Safety Report 15156426 (Version 2)
Quarter: 2018Q3

REPORT INFORMATION
  Report Type: Report from Study
  Country: US (occurrence: US)
  Receive Date: 20180717
  Receipt Date: 20180924
  Transmission Date: 20181010
  Serious: Yes (Death, Hospitalization, Other)
  Sender: FDA-Public Use
  Company Number: US-ACTELION-A-NJ2016-129924

PATIENT
  Age: 58 Year
  Sex: Female
  Weight: 124.72 kg

DRUGS (5)
  1. TYVASO [Concomitant]
     Active Substance: TREPROSTINIL
  2. LASIX [Concomitant]
     Active Substance: FUROSEMIDE
  3. DILTIAZEM. [Concomitant]
     Active Substance: DILTIAZEM
  4. ADEMPAS [Concomitant]
     Active Substance: RIOCIGUAT
  5. OPSUMIT [Suspect]
     Active Substance: MACITENTAN
     Indication: PULMONARY HYPERTENSION
     Dosage: 10 MG, QD
     Route: 048
     Dates: start: 20151230

REACTIONS (17)
  - Death [Fatal]
  - Pulmonary oedema [Unknown]
  - Dyspnoea [Unknown]
  - Headache [Unknown]
  - Oedema [Unknown]
  - Rales [Unknown]
  - Weight increased [Unknown]
  - Fatigue [Recovering/Resolving]
  - Cough [Unknown]
  - Lymphopenia [Unknown]
  - Oropharyngeal pain [Recovering/Resolving]
  - Fluid retention [Unknown]
  - Oedema peripheral [Unknown]
  - Nausea [Recovering/Resolving]
  - Therapy non-responder [Unknown]
  - Pollakiuria [Unknown]
  - Polyuria [Unknown]

NARRATIVE: CASE EVENT DATE: 20161031
